FAERS Safety Report 6196376-8 (Version None)
Quarter: 2009Q2

REPORT INFORMATION
  Report Type: 
  Country: None (occurrence: None)
  Receive Date: 20090520
  Receipt Date: 20090518
  Transmission Date: 20091009
  Serious: Yes (Death, Other)
  Sender: FDA-Public Use
  Company Number: US-BRISTOL-MYERS SQUIBB COMPANY-14550321

PATIENT
  Age: 59 Year
  Sex: Female
  Weight: 120 kg

DRUGS (4)
  1. ERBITUX [Suspect]
     Indication: OESOPHAGEAL ADENOCARCINOMA
     Dosage: 400MG/M2 1ST DOSE THEN 250 MG/M2. STARTED ON 02/02/2009.
     Dates: start: 20090303, end: 20090303
  2. FLUOROURACIL [Suspect]
     Indication: OESOPHAGEAL ADENOCARCINOMA
     Dosage: 180MG/M2.STARTED ON 02/02/2009.
     Dates: start: 20090309, end: 20090309
  3. ELOXATIN [Suspect]
     Indication: OESOPHAGEAL ADENOCARCINOMA
     Dosage: 85MG/M2.STARTED ON 02/02/2009.
     Dates: start: 20090303, end: 20090303
  4. RADIATION THERAPY [Suspect]
     Indication: OESOPHAGEAL ADENOCARCINOMA
     Dosage: 1DF=4500GY. STARTED ON 02/02/2009.5 DAYS PER WEEK.
     Dates: start: 20090306, end: 20090306

REACTIONS (2)
  - CARDIAC ARREST [None]
  - PULMONARY EMBOLISM [None]
